FAERS Safety Report 9948068 (Version 2)
Quarter: 2014Q1

REPORT INFORMATION
  Report Type: Report from Study
  Country: US (occurrence: US)
  Receive Date: 20140303
  Receipt Date: 20140303
  Transmission Date: 20141002
  Serious: Yes (Hospitalization, Other)
  Sender: FDA-Public Use
  Company Number: US-ABBVIE-13P-163-1055319-00

PATIENT
  Age: 47 Year
  Sex: Male
  Weight: 93.52 kg

DRUGS (5)
  1. HUMIRA [Suspect]
     Indication: CROHN^S DISEASE
     Dosage: LOADING
     Route: 058
     Dates: start: 20130117, end: 20130117
  2. HUMIRA [Suspect]
     Route: 058
     Dates: start: 20130131, end: 20130131
  3. SULFASALAZINE [Concomitant]
     Indication: INFLAMMATION
  4. FOLIC ACID [Concomitant]
     Indication: VITAMIN SUPPLEMENTATION
  5. SYNTHROID [Concomitant]
     Indication: THYROID DISORDER

REACTIONS (3)
  - Intestinal resection [Recovering/Resolving]
  - Colectomy [Recovering/Resolving]
  - Abdominal pain [Recovering/Resolving]
